FAERS Safety Report 17608048 (Version 1)
Quarter: 2020Q1

REPORT INFORMATION
  Report Type: Spontaneous
  Country: IN (occurrence: IN)
  Receive Date: 20200331
  Receipt Date: 20200331
  Transmission Date: 20200409
  Serious: Yes (Other)
  Sender: FDA-Public Use
  Company Number: IN-AMNEAL PHARMACEUTICALS-2020-AMRX-00942

PATIENT
  Age: 35 Year
  Sex: Female
  Weight: 44 kg

DRUGS (8)
  1. LIGNOCAINE [LIDOCAINE] [Concomitant]
     Active Substance: LIDOCAINE
     Indication: DACRYOCYSTORHINOSTOMY
     Dosage: 30ML LIGNOCAINE ADDED IN ADRENALINE 3 AMPULES OF ADRENALINE (1:2,00,000)
     Route: 045
  2. ADRENACLICK [Suspect]
     Active Substance: EPINEPHRINE
     Indication: DACRYOCYSTORHINOSTOMY
     Dosage: 3 AMPULES OF ADRENALINE (1:2,00,000) ADDED WITH 30 ML OF LIGNOCAINE
     Route: 045
  3. DEXMEDETOMIDINE. [Concomitant]
     Active Substance: DEXMEDETOMIDINE
     Dosage: DOSE STEPPED TO 24 MCG/HR
     Route: 065
  4. GLYCOPYRROLATE [GLYCOPYRRONIUM BROMIDE] [Concomitant]
     Active Substance: GLYCOPYRROLATE
     Indication: DACRYOCYSTORHINOSTOMY
     Dosage: 0.2 MILLIGRAM
     Route: 065
  5. PENTAZOCINE HYDROCHLORIDE [Concomitant]
     Active Substance: PENTAZOCINE HYDROCHLORIDE
     Indication: DACRYOCYSTORHINOSTOMY
     Dosage: 20 MILLIGRAM
     Route: 065
  6. DEXMEDETOMIDINE. [Concomitant]
     Active Substance: DEXMEDETOMIDINE
     Dosage: DOSE STEPPED TO 20 MCG/HR
     Route: 065
  7. MIDAZOLAM. [Concomitant]
     Active Substance: MIDAZOLAM
     Indication: DACRYOCYSTORHINOSTOMY
     Dosage: 1 MILLIGRAM
     Route: 042
  8. DEXMEDETOMIDINE. [Concomitant]
     Active Substance: DEXMEDETOMIDINE
     Indication: DACRYOCYSTORHINOSTOMY
     Dosage: DOSE 16 MCG/HR
     Route: 065

REACTIONS (3)
  - Myocardial ischaemia [Recovered/Resolved]
  - Pulmonary oedema [Recovered/Resolved]
  - Hypertension [Recovered/Resolved]
